FAERS Safety Report 5517986-4 (Version None)
Quarter: 2007Q4

REPORT INFORMATION
  Report Type: 
  Country: None (occurrence: None)
  Receive Date: 20071113
  Receipt Date: 20071031
  Transmission Date: 20080405
  Serious: Yes (Life-Threatening, Hospitalization, Other)
  Sender: FDA-Public Use
  Company Number: 235086K06USA

PATIENT
  Age: 40 Year
  Sex: Female

DRUGS (5)
  1. REBIF [Suspect]
     Indication: MULTIPLE SCLEROSIS
     Dosage: 44 MCG, 3 IN 1 WEEKS, SUBCUTANEOUS
     Route: 058
     Dates: start: 20050507
  2. VERSED [Suspect]
     Dosage: INTRAVENOUS
     Route: 042
     Dates: start: 20060724, end: 20060724
  3. TYLENOL                             (COTYLENOL) [Concomitant]
  4. ALTACE                        (RAMIPRIL /00885601/) [Concomitant]
  5. METFORMIN                             (METFORMIN /00082701/) [Concomitant]

REACTIONS (8)
  - CARDIAC ARREST [None]
  - COUGH [None]
  - DEPRESSION [None]
  - DRUG HYPERSENSITIVITY [None]
  - DYSPNOEA [None]
  - HEART RATE IRREGULAR [None]
  - INSOMNIA [None]
  - RESPIRATORY ARREST [None]
